FAERS Safety Report 5938738-7 (Version None)
Quarter: 2008Q4

REPORT INFORMATION
  Report Type: 
  Country: None (occurrence: None)
  Receive Date: 20081103
  Receipt Date: 20081029
  Transmission Date: 20090506
  Serious: Yes (Hospitalization, Other)
  Sender: FDA-Public Use
  Company Number: US-ASTRAZENECA-2007UW12126

PATIENT
  Age: 16065 Day
  Sex: Female
  Weight: 113.4 kg

DRUGS (42)
  1. SEROQUEL [Suspect]
     Indication: BIPOLAR DISORDER
     Dosage: 100 MG TO 800 MG
     Route: 048
     Dates: start: 20011011, end: 20070208
  2. SEROQUEL [Suspect]
     Indication: DEPRESSION
     Dosage: 100 MG TO 800 MG
     Route: 048
     Dates: start: 20011011, end: 20070208
  3. SEROQUEL [Suspect]
     Indication: BORDERLINE PERSONALITY DISORDER
     Dosage: 100 MG TO 800 MG
     Route: 048
     Dates: start: 20011011, end: 20070208
  4. PHEN-FEN [Concomitant]
     Dates: start: 19970708, end: 19970908
  5. HALDOL [Concomitant]
     Dosage: 5 MG
     Dates: start: 19960807, end: 19970818
  6. NAVANE [Concomitant]
     Dosage: 5 MG
     Dates: start: 19930101, end: 19951013
  7. ZYPREXA [Concomitant]
     Dosage: 10 MG
     Dates: start: 19971208, end: 20011108
  8. LITHIUM [Concomitant]
     Dates: start: 19980604
  9. INSULIN [Concomitant]
  10. CELEXA [Concomitant]
  11. AVANDIA [Concomitant]
  12. TRILEPTAL [Concomitant]
  13. DILANTIN [Concomitant]
  14. TEGRETOL [Concomitant]
     Dosage: 200 MG QAM, 400 MG QPM
  15. AMBIEN [Concomitant]
  16. XANAX [Concomitant]
  17. ALLEGRA-D [Concomitant]
     Dosage: TWO TIMES A DAY
  18. COMBIVENT [Concomitant]
  19. DEMEDEX [Concomitant]
  20. DETROL [Concomitant]
  21. DIOVAN [Concomitant]
  22. DYINEB [Concomitant]
     Dosage: FOUR TIMES A DAY
  23. GLYBURIDE [Concomitant]
  24. HUMALOG [Concomitant]
     Dosage: 75/25 35 UNITS AM AND PM
  25. IMDUR [Concomitant]
  26. LISINOPRIL [Concomitant]
  27. PLAVIX [Concomitant]
  28. POTASSIUM CHLORIDE [Concomitant]
  29. PROTONIX [Concomitant]
  30. PULMICORT [Concomitant]
     Dosage: TWO TIMES A DAY
  31. REGLAN [Concomitant]
  32. METHYLPHENIDATE HCL [Concomitant]
     Dosage: 20 MG
  33. WELLBUTRIN [Concomitant]
     Dosage: 150 MG
  34. DIPHENHYDRAMINE HCL [Concomitant]
     Dosage: 50 MG
  35. BIAXIN [Concomitant]
     Dosage: 500 MG
  36. BUTALBITAL ACETAMINOPHEN AND CAFFEINE [Concomitant]
  37. TIZANIDINE HCL [Concomitant]
  38. ZYRTEC-D 12 HOUR [Concomitant]
  39. DICLOFENAC SODIUM [Concomitant]
  40. CHANTIX [Concomitant]
  41. TOPAMAX [Concomitant]
  42. PREDNISONE [Concomitant]
     Dosage: 10 MG

REACTIONS (15)
  - BALANCE DISORDER [None]
  - BRADYCARDIA [None]
  - CATARACT OPERATION [None]
  - CHOLECYSTITIS CHRONIC [None]
  - CONVULSION [None]
  - DIABETIC COMPLICATION [None]
  - DYSPNOEA [None]
  - HYPONATRAEMIA [None]
  - HYPOTENSION [None]
  - NERVOUS SYSTEM DISORDER [None]
  - ORTHOPNOEA [None]
  - PANCREATITIS ACUTE [None]
  - PNEUMONIA [None]
  - RENAL IMPAIRMENT [None]
  - TREMOR [None]
